FAERS Safety Report 10688630 (Version 1)
Quarter: 2015Q1

REPORT INFORMATION
  Report Type: Spontaneous
  Country: BR (occurrence: BR)
  Receive Date: 20150102
  Receipt Date: 20150102
  Transmission Date: 20150720
  Serious: Yes (Hospitalization)
  Sender: FDA-Public Use
  Company Number: BR-ASTRAZENECA-2014SE99510

PATIENT
  Age: 639 Month
  Sex: Female

DRUGS (4)
  1. CLOPIDOGREL [Concomitant]
     Active Substance: CLOPIDOGREL BISULFATE
  2. BRILINTA [Concomitant]
     Active Substance: TICAGRELOR
  3. ASPIRIN. [Concomitant]
     Active Substance: ASPIRIN
     Dates: start: 201405
  4. CRESTOR [Suspect]
     Active Substance: ROSUVASTATIN CALCIUM
     Indication: BLOOD CHOLESTEROL INCREASED
     Route: 048
     Dates: start: 201405

REACTIONS (1)
  - Carotid artery occlusion [Recovered/Resolved]

NARRATIVE: CASE EVENT DATE: 201412
